FAERS Safety Report 5742625-7 (Version None)
Quarter: 2008Q2

REPORT INFORMATION
  Report Type: 
  Country: None (occurrence: None)
  Receive Date: 20080519
  Receipt Date: 20080508
  Transmission Date: 20081010
  Serious: Yes (Other)
  Sender: FDA-Public Use
  Company Number: GB-AMGEN-US279105

PATIENT
  Age: 69 Year
  Sex: Female
  Weight: 58 kg

DRUGS (9)
  1. ENBREL [Suspect]
     Indication: RHEUMATOID ARTHRITIS
     Dosage: UNKNOWN
     Route: 065
     Dates: start: 20040712, end: 20041101
  2. REMICADE [Suspect]
     Indication: RHEUMATOID ARTHRITIS
     Route: 042
     Dates: start: 20020313, end: 20040105
  3. PREDNISOLONE [Suspect]
     Indication: RHEUMATOID ARTHRITIS
     Dosage: UNKNOWN
     Route: 065
  4. AMITRIPTYLINE HCL [Concomitant]
     Dosage: UNKNOWN
     Route: 065
  5. DIHYDROCODEINE BITARTRATE/PARACETAMOL [Concomitant]
     Indication: ARTHRALGIA
     Dosage: UNKNOWN
     Route: 065
  6. LISINOPRIL [Concomitant]
     Indication: HYPERTENSION
     Dosage: UNKNOWN
     Route: 065
     Dates: start: 20020101
  7. PLAQUENIL [Concomitant]
     Dosage: UNKNOWN
     Route: 065
  8. ZOPICLONE [Concomitant]
     Indication: SLEEP DISORDER
     Dosage: UNKNOWN
     Route: 048
  9. FOSAMAX [Concomitant]
     Dosage: UNKNOWN
     Route: 048

REACTIONS (1)
  - ECZEMA [None]
